FAERS Safety Report 13158806 (Version 1)
Quarter: 2017Q1

REPORT INFORMATION
  Report Type: Spontaneous
  Country: US (occurrence: US)
  Receive Date: 20170127
  Receipt Date: 20170127
  Transmission Date: 20170428
  Serious: No
  Sender: FDA-Public Use
  Company Number: US-ASTRAZENECA-2017SE06257

PATIENT
  Age: 70 Year
  Sex: Male
  Weight: 90.7 kg

DRUGS (6)
  1. BYDUREON [Suspect]
     Active Substance: EXENATIDE
     Indication: TYPE 2 DIABETES MELLITUS
     Route: 058
     Dates: start: 201607
  2. POTASSIUM [Concomitant]
     Active Substance: POTASSIUM
     Indication: MUSCLE SPASMS
  3. SIMVASTATIN. [Concomitant]
     Active Substance: SIMVASTATIN
     Indication: BLOOD CHOLESTEROL ABNORMAL
  4. AMPYRA [Concomitant]
     Active Substance: DALFAMPRIDINE
     Indication: NERVOUS SYSTEM DISORDER
     Dates: end: 201701
  5. LOSARTAN. [Concomitant]
     Active Substance: LOSARTAN
     Indication: BLOOD PRESSURE MEASUREMENT
  6. MAGNESIUM [Concomitant]
     Active Substance: MAGNESIUM
     Indication: NERVOUS SYSTEM DISORDER

REACTIONS (10)
  - Dry skin [Recovered/Resolved]
  - Balance disorder [Recovering/Resolving]
  - Depressed level of consciousness [Recovering/Resolving]
  - Burning sensation [Not Recovered/Not Resolved]
  - Skin wrinkling [Not Recovered/Not Resolved]
  - Injection site mass [Recovering/Resolving]
  - Decreased appetite [Recovered/Resolved]
  - Intraocular pressure test [Recovering/Resolving]
  - Rash erythematous [Recovered/Resolved]
  - Nausea [Recovered/Resolved]

NARRATIVE: CASE EVENT DATE: 201607
